FAERS Safety Report 11702724 (Version 2)
Quarter: 2015Q4

REPORT INFORMATION
  Report Type: Spontaneous
  Country: US (occurrence: US)
  Receive Date: 20151105
  Receipt Date: 20151124
  Transmission Date: 20160304
  Serious: No
  Sender: FDA-Public Use
  Company Number: US-PFIZER INC-2015369765

PATIENT
  Age: 71 Year
  Sex: Female
  Weight: 66 kg

DRUGS (2)
  1. IBRANCE [Suspect]
     Active Substance: PALBOCICLIB
     Indication: BREAST CANCER
     Dosage: 75 MG CAPSULE, ONE BY MOUTH DAILY FOR 21 DAYS ON THEN 7 DAYS OFF
     Route: 048
     Dates: start: 201504, end: 201507
  2. ANASTROZOLE. [Concomitant]
     Active Substance: ANASTROZOLE
     Indication: BREAST CANCER
     Dosage: 1 MG, UNK

REACTIONS (5)
  - Disease progression [Unknown]
  - White blood cell count decreased [Recovered/Resolved]
  - Malaise [Recovered/Resolved]
  - Feeling cold [Recovered/Resolved]
  - Breast cancer [Unknown]

NARRATIVE: CASE EVENT DATE: 201504
